FAERS Safety Report 11209296 (Version 7)
Quarter: 2015Q4

REPORT INFORMATION
  Report Type: Spontaneous
  Country: US (occurrence: US)
  Receive Date: 20150622
  Receipt Date: 20151111
  Transmission Date: 20160304
  Serious: Yes (Hospitalization, Other)
  Sender: FDA-Public Use
  Company Number: US-009507513-1107USA01813

PATIENT
  Sex: Female
  Weight: 73.47 kg

DRUGS (6)
  1. CALCIUM (UNSPECIFIED) (+) VITAMIN D (UNSPECIFIED) [Concomitant]
     Active Substance: CALCIUM CARBONATE\VITAMIN D
     Indication: OSTEOPOROSIS
     Dosage: 600, UNK, BID
     Route: 048
     Dates: start: 2000
  2. FOSAMAX [Suspect]
     Active Substance: ALENDRONATE SODIUM
     Indication: OSTEOPOROSIS
  3. FOSAMAX PLUS D [Suspect]
     Active Substance: ALENDRONATE SODIUM\CHOLECALCIFEROL
     Indication: OSTEOPOROSIS
  4. FOSAMAX PLUS D [Suspect]
     Active Substance: ALENDRONATE SODIUM\CHOLECALCIFEROL
     Indication: OSTEOPENIA
     Dosage: 70 MG, QW
     Route: 048
     Dates: end: 20100419
  5. BONIVA [Suspect]
     Active Substance: IBANDRONATE SODIUM
     Indication: OSTEOPENIA
     Dosage: 150 MG, QW
     Route: 048
     Dates: start: 201008, end: 20110201
  6. FOSAMAX [Suspect]
     Active Substance: ALENDRONATE SODIUM
     Indication: OSTEOPENIA
     Dosage: 70 MG, QW
     Route: 048
     Dates: start: 20010109, end: 20100419

REACTIONS (19)
  - Anaemia [Recovered/Resolved]
  - Full blood count decreased [Recovering/Resolving]
  - Facial pain [Unknown]
  - Pubis fracture [Recovering/Resolving]
  - Pelvic haematoma [Unknown]
  - Hypertension [Unknown]
  - Haematoma [Unknown]
  - Femur fracture [Unknown]
  - Fall [Unknown]
  - Rheumatoid nodule [Unknown]
  - Gait disturbance [Unknown]
  - Radiotherapy [Unknown]
  - Bone disorder [Unknown]
  - Bundle branch block right [Unknown]
  - Rheumatoid arthritis [Unknown]
  - Treatment failure [Unknown]
  - Fall [Unknown]
  - Limb asymmetry [Unknown]
  - Dizziness [Unknown]

NARRATIVE: CASE EVENT DATE: 20030711
